FAERS Safety Report 23336506 (Version 1)
Quarter: 2023Q4

REPORT INFORMATION
  Report Type: Report from Study
  Country: US (occurrence: US)
  Receive Date: 20231226
  Receipt Date: 20231226
  Transmission Date: 20240109
  Serious: Yes (Other)
  Sender: FDA-Public Use
  Company Number: US-ABBVIE-5553406

PATIENT
  Sex: Female

DRUGS (1)
  1. HUMIRA [Suspect]
     Active Substance: ADALIMUMAB
     Indication: Rheumatoid arthritis
     Route: 058
     Dates: start: 20230815

REACTIONS (11)
  - Inflammation [Not Recovered/Not Resolved]
  - Pain in extremity [Recovering/Resolving]
  - Musculoskeletal pain [Not Recovered/Not Resolved]
  - Back pain [Recovering/Resolving]
  - Dysstasia [Unknown]
  - Gait disturbance [Unknown]
  - Loss of personal independence in daily activities [Unknown]
  - Systemic lupus erythematosus [Unknown]
  - Mobility decreased [Recovering/Resolving]
  - Arthralgia [Not Recovered/Not Resolved]
  - Fibromyalgia [Unknown]

NARRATIVE: CASE EVENT DATE: 20230101
